FAERS Safety Report 23638410 (Version 9)
Quarter: 2024Q3

REPORT INFORMATION
  Report Type: Spontaneous
  Country: PL (occurrence: PL)
  Receive Date: 20240315
  Receipt Date: 20240705
  Transmission Date: 20241017
  Serious: Yes (Hospitalization, Other)
  Sender: PFIZER
  Company Number: PL-ROCHE-3510725

PATIENT
  Age: 45 Year
  Sex: Male
  Weight: 78 kg

DRUGS (62)
  1. DOXORUBICIN HYDROCHLORIDE [Suspect]
     Active Substance: DOXORUBICIN HYDROCHLORIDE
     Indication: Diffuse large B-cell lymphoma
     Dosage: 94.5 MG, EVERY 3 WEEKS
     Route: 042
     Dates: start: 20240206
  2. RITUXIMAB [Suspect]
     Active Substance: RITUXIMAB
     Indication: Diffuse large B-cell lymphoma
     Dosage: 708.75 MG, EVERY 3 WEEKS
     Route: 042
     Dates: start: 20240206
  3. RITUXIMAB [Suspect]
     Active Substance: RITUXIMAB
     Dosage: 708.75 MG, EVERY 3 WEEKS
  4. RITUXIMAB [Suspect]
     Active Substance: RITUXIMAB
     Dosage: UNK
     Route: 042
  5. DOXORUBICIN [Suspect]
     Active Substance: DOXORUBICIN
     Indication: Diffuse large B-cell lymphoma
     Dosage: 94.5 MG, EVERY 3 WEEKS
     Route: 042
     Dates: start: 20240206
  6. PREDNISONE [Suspect]
     Active Substance: PREDNISONE
     Indication: Diffuse large B-cell lymphoma
     Dosage: ON 10/FEB/2024 HE RECEIVED MOST RECENT DOSE OF STUDY DRUG (100 MG) PRIOR TO AE/SAE
     Route: 048
     Dates: start: 20240206
  7. POLATUZUMAB VEDOTIN [Suspect]
     Active Substance: POLATUZUMAB VEDOTIN
     Indication: Diffuse large B-cell lymphoma
     Dosage: 140.4 MG, EVERY 3 WEEKS
     Route: 042
     Dates: start: 20240207
  8. CYCLOPHOSPHAMIDE [Suspect]
     Active Substance: CYCLOPHOSPHAMIDE
     Indication: Diffuse large B-cell lymphoma
     Dosage: 1417.5 MG, EVERY 3 WEEKS
     Route: 042
     Dates: start: 20240206
  9. ZOFRAN [Concomitant]
     Active Substance: ONDANSETRON HYDROCHLORIDE
     Dosage: 8 MG, AS NEEDED
     Dates: start: 20240207, end: 20240207
  10. FILGRASTIM [Concomitant]
     Active Substance: FILGRASTIM
     Dosage: UNK, 1X/DAY
     Route: 058
     Dates: start: 20240209
  11. ENOXAPARIN SODIUM [Concomitant]
     Active Substance: ENOXAPARIN SODIUM
     Indication: Prophylaxis
     Dosage: 80 MG, 2X/DAY (FREQ:.5 D)
     Dates: start: 20240130, end: 20240213
  12. ENOXAPARIN SODIUM [Concomitant]
     Active Substance: ENOXAPARIN SODIUM
     Dosage: 100 MG, 2X/DAY
     Dates: start: 20240206, end: 20240210
  13. ENOXAPARIN SODIUM [Concomitant]
     Active Substance: ENOXAPARIN SODIUM
     Dosage: 40 MG, 1X/DAY
     Route: 030
     Dates: start: 20240220, end: 20240507
  14. ENOXAPARIN SODIUM [Concomitant]
     Active Substance: ENOXAPARIN SODIUM
     Dosage: 80 MG
     Route: 058
     Dates: start: 20240130, end: 20240213
  15. ENOXAPARIN SODIUM [Concomitant]
     Active Substance: ENOXAPARIN SODIUM
     Dosage: FREQ:.5 D;
     Dates: start: 20240206, end: 20240210
  16. OMEPRAZOLE [Concomitant]
     Active Substance: OMEPRAZOLE
     Dosage: 40 MG, 2X/DAY (FREQ:.5 D)
     Dates: start: 20240201
  17. OMEPRAZOLE [Concomitant]
     Active Substance: OMEPRAZOLE
     Dosage: FREQ:.5 D;
     Dates: start: 20240201
  18. PREDNISONE [Concomitant]
     Active Substance: PREDNISONE
     Dosage: 15 MG, 1X/DAY
     Dates: start: 20240201, end: 20240205
  19. PREDNISONE [Concomitant]
     Active Substance: PREDNISONE
     Dosage: 30 MG, 1X/DAY
     Dates: start: 20240201, end: 20240205
  20. PREDNISONE [Concomitant]
     Active Substance: PREDNISONE
     Dosage: 100 MG, 1X/DAY
     Dates: start: 20240206, end: 20240210
  21. HASCOVIR [Concomitant]
     Dosage: 800 MG, 2X/DAY (FREQ:.5 D)
     Dates: start: 20240206
  22. HASCOVIR [Concomitant]
     Dosage: FREQ:.5 D;
     Route: 048
     Dates: start: 20240206
  23. ALLOPURINOL [Concomitant]
     Active Substance: ALLOPURINOL
     Indication: Prophylaxis
     Dosage: 300 MG, 1X/DAY
     Route: 048
     Dates: start: 20240201, end: 20240205
  24. ALLOPURINOL [Concomitant]
     Active Substance: ALLOPURINOL
     Dosage: 600 MG (FREQ:.5 D)
     Dates: start: 20240206, end: 20240212
  25. ALLOPURINOL [Concomitant]
     Active Substance: ALLOPURINOL
     Dosage: 600 MG, 1X/DAY
     Route: 048
     Dates: start: 20240213
  26. ALLOPURINOL [Concomitant]
     Active Substance: ALLOPURINOL
     Dosage: TLS PROPHYLAXIS
     Route: 048
     Dates: start: 20240220, end: 20240305
  27. ALLOPURINOL [Concomitant]
     Active Substance: ALLOPURINOL
     Dosage: FREQ:.5 D;TLS PREVENTION
     Route: 048
     Dates: start: 20240206, end: 20240212
  28. BUPRENORPHINE [Concomitant]
     Active Substance: BUPRENORPHINE
     Dosage: 35 UG (FREQ:4 D)
     Route: 062
     Dates: start: 20240214, end: 20240305
  29. ACYCLOVIR [Concomitant]
     Active Substance: ACYCLOVIR
     Dosage: 800 MG
     Dates: start: 20240206
  30. DEXAMETHASONE [Concomitant]
     Active Substance: DEXAMETHASONE
     Indication: Feeling hot
     Dosage: 10 MG
     Route: 042
     Dates: start: 20240206, end: 20240206
  31. DEXAMETHASONE [Concomitant]
     Active Substance: DEXAMETHASONE
     Indication: Blood pressure decreased
  32. DEXAMETHASONE [Concomitant]
     Active Substance: DEXAMETHASONE
     Indication: Nausea
  33. PANTOPRAZOLE [Concomitant]
     Active Substance: PANTOPRAZOLE
     Dosage: 20 MG, 1X/DAY
     Dates: start: 20240214
  34. FILGRASTIMUM [Concomitant]
     Dosage: UNK, 1X/DAY
     Route: 058
     Dates: start: 20240209, end: 20240215
  35. ONDANSETRON [Concomitant]
     Active Substance: ONDANSETRON
     Indication: Premedication
     Dosage: 8 MG
     Route: 042
     Dates: start: 20240207, end: 20240207
  36. ONDANSETRON [Concomitant]
     Active Substance: ONDANSETRON
     Dosage: 8 MG
     Route: 042
     Dates: start: 20240207, end: 20240207
  37. SODIUM CHLORIDE [Concomitant]
     Active Substance: SODIUM CHLORIDE
     Dosage: UNK
     Dates: start: 20240214, end: 20240220
  38. LEVOFLOXACIN [Concomitant]
     Active Substance: LEVOFLOXACIN
     Dosage: UNK
     Dates: start: 20240213, end: 20240220
  39. FLUCONAZOLUM [FLUCONAZOLE] [Concomitant]
     Dosage: 200 MG
     Dates: start: 20240213, end: 20240220
  40. HUMAN RED BLOOD CELL [Concomitant]
     Active Substance: HUMAN RED BLOOD CELL
     Dosage: 2 U
     Dates: start: 202402, end: 202402
  41. ENOXAPARIN SODIUM [Concomitant]
     Active Substance: ENOXAPARIN SODIUM
     Dosage: 100 MG, FREQ .5 D
     Dates: start: 20240206, end: 20240210
  42. ENOXAPARIN SODIUM [Concomitant]
     Active Substance: ENOXAPARIN SODIUM
     Dosage: 80 MG
     Dates: start: 20240130, end: 20240213
  43. ENOXAPARIN SODIUM [Concomitant]
     Active Substance: ENOXAPARIN SODIUM
     Dosage: 40 MG, 1X/DAY
     Dates: start: 20240220, end: 20240507
  44. POTASSIUM BICARBONATE/POTASSIUM CITRATE MONOHYDRATE [Concomitant]
     Dosage: UNK
     Dates: start: 20240214, end: 20240220
  45. ALLOPURINOL [Concomitant]
     Active Substance: ALLOPURINOL
     Dosage: UNK
     Dates: start: 20240214, end: 20240214
  46. METOCLOPRAMIDI HYDROCHLORIDUM [Concomitant]
     Dosage: UNK
     Dates: start: 20240214, end: 20240220
  47. CEFTRIAXONUM [CEFTRIAXONE] [Concomitant]
     Dosage: 2 MG
     Dates: start: 20240213, end: 20240220
  48. POTASSIUM CHLORIDE [Concomitant]
     Active Substance: POTASSIUM CHLORIDE
     Dosage: UNK
     Dates: start: 20240214, end: 20240220
  49. POTASSIUM BICARBONATE\POTASSIUM CITRATE [Concomitant]
     Active Substance: POTASSIUM BICARBONATE\POTASSIUM CITRATE
     Dosage: UNK
     Dates: start: 20240214, end: 20240220
  50. CLEMASTINUM [CLEMASTINE] [Concomitant]
     Dosage: 2 MG
     Dates: start: 20240206, end: 20240318
  51. ACETAMINOPHEN [Concomitant]
     Active Substance: ACETAMINOPHEN
     Dosage: 1000 MG, AS NEEDED
     Route: 042
     Dates: start: 20240206, end: 20240226
  52. ENOXAPARIN SODIUM [Concomitant]
     Active Substance: ENOXAPARIN SODIUM
     Dosage: UNK
     Dates: start: 20240214, end: 20240220
  53. FLUCONAZOLUM [FLUCONAZOLE] [Concomitant]
     Dosage: 200 MG
     Route: 042
     Dates: start: 20240213, end: 20240220
  54. ZOFRAN [Concomitant]
     Active Substance: ONDANSETRON HYDROCHLORIDE
     Dosage: 8 MG, AS NEEDED
     Route: 048
     Dates: start: 20240207
  55. ACYCLOVIR [Concomitant]
     Active Substance: ACYCLOVIR
     Dosage: FREQ:.5 D;
     Route: 048
     Dates: start: 20240206
  56. OMEPRAZOLE [Concomitant]
     Active Substance: OMEPRAZOLE
     Dosage: FREQ:.5 D;
     Route: 048
     Dates: start: 20240201
  57. CEFTRIAXONUM [CEFTRIAXONE] [Concomitant]
     Dosage: FREQ:.5 D;
     Dates: start: 20240213, end: 20240220
  58. CLEMASTINUM [CLEMASTINE] [Concomitant]
     Dosage: 2 MG, AS NEEDED
     Route: 042
     Dates: start: 20240206, end: 20240318
  59. PREDNISONE ACETATE [Concomitant]
     Active Substance: PREDNISONE ACETATE
     Dosage: 15 MG, 1X/DAY
     Route: 048
     Dates: start: 20240201, end: 20240205
  60. PREDNISONE ACETATE [Concomitant]
     Active Substance: PREDNISONE ACETATE
     Dosage: 100 MG, 1X/DAY
     Route: 048
     Dates: start: 20240206, end: 20240210
  61. PREDNISONE ACETATE [Concomitant]
     Active Substance: PREDNISONE ACETATE
     Dosage: 30 MG, 1X/DAY
     Route: 048
     Dates: start: 20240201, end: 20240205
  62. KALII CITRAS [Concomitant]
     Dosage: 2 U
     Dates: start: 202402, end: 202402

REACTIONS (4)
  - Febrile neutropenia [Recovered/Resolved]
  - C-reactive protein increased [Unknown]
  - Haematocrit decreased [Not Recovered/Not Resolved]
  - Haemoglobin decreased [Not Recovered/Not Resolved]

NARRATIVE: CASE EVENT DATE: 20240213
